FAERS Safety Report 21634119 (Version 2)
Quarter: 2022Q4

REPORT INFORMATION
  Report Type: Spontaneous
  Country: CN (occurrence: None)
  Receive Date: 20221123
  Receipt Date: 20221214
  Transmission Date: 20230113
  Serious: Yes (Other)
  Sender: FDA-Public Use
  Company Number: CN-Eisai Medical Research-EC-2022-128252

PATIENT
  Age: 58 Year
  Sex: Male
  Weight: 47 kg

DRUGS (4)
  1. HALAVEN [Suspect]
     Active Substance: ERIBULIN MESYLATE
     Indication: Neoplasm malignant
     Route: 042
     Dates: start: 20221028, end: 20221028
  2. HALAVEN [Suspect]
     Active Substance: ERIBULIN MESYLATE
     Route: 042
     Dates: start: 20221126
  3. ENDOSTATIN [Concomitant]
     Active Substance: ENDOSTATIN
     Indication: Neoplasm
     Route: 042
     Dates: start: 20221028, end: 20221028
  4. ENDOSTATIN [Concomitant]
     Active Substance: ENDOSTATIN
     Route: 042
     Dates: start: 20221126, end: 20221126

REACTIONS (3)
  - White blood cell count decreased [Recovering/Resolving]
  - Neutrophil count decreased [Recovered/Resolved]
  - Febrile neutropenia [Recovering/Resolving]

NARRATIVE: CASE EVENT DATE: 20221102
